FAERS Safety Report 16288996 (Version 2)
Quarter: 2019Q2

REPORT INFORMATION
  Report Type: Spontaneous
  Country: KR (occurrence: KR)
  Receive Date: 20190509
  Receipt Date: 20190520
  Transmission Date: 20190711
  Serious: Yes (Hospitalization, Other)
  Sender: FDA-Public Use
  Company Number: KR-009507513-1905KOR001451

PATIENT
  Sex: Male

DRUGS (2)
  1. KEYTRUDA [Suspect]
     Active Substance: PEMBROLIZUMAB
     Indication: NON-SMALL CELL LUNG CANCER RECURRENT
     Dosage: QUANTITIES: 2, DAYS: 1
     Dates: start: 20190403, end: 20190403
  2. KEYTRUDA [Suspect]
     Active Substance: PEMBROLIZUMAB
     Dosage: QUANTITIES: 2, DAYS: 1
     Dates: start: 20190423, end: 20190423

REACTIONS (4)
  - Adverse event [Unknown]
  - Packed red blood cell transfusion [Unknown]
  - Malignant pleural effusion [Unknown]
  - Chest tube insertion [Unknown]

NARRATIVE: CASE EVENT DATE: 201904
